FAERS Safety Report 17308616 (Version 1)
Quarter: 2020Q1

REPORT INFORMATION
  Report Type: Spontaneous
  Country: US (occurrence: US)
  Receive Date: 20200123
  Receipt Date: 20200123
  Transmission Date: 20200409
  Serious: No
  Sender: FDA-Public Use
  Company Number: US-SA-2015SA012588

PATIENT
  Age: 82 Year
  Sex: Male
  Weight: 71.2 kg

DRUGS (15)
  1. HYDROCHLOROTHIAZIDE. [Concomitant]
     Active Substance: HYDROCHLOROTHIAZIDE
     Dosage: 12.5 MG,UNK
     Route: 065
     Dates: start: 201604
  2. ACETYLSALICYLIC ACID [Concomitant]
     Active Substance: ASPIRIN
     Indication: ATRIAL FIBRILLATION
     Dosage: 81 MG,UNK
     Route: 065
  3. LANTUS SOLOSTAR [Suspect]
     Active Substance: INSULIN GLARGINE
     Indication: TYPE 2 DIABETES MELLITUS
     Dosage: UNK UNK,BID
     Route: 065
     Dates: start: 2013
  4. LANTUS SOLOSTAR [Suspect]
     Active Substance: INSULIN GLARGINE
     Dosage: 21 IU, QD
     Route: 065
     Dates: start: 2014
  5. WARFARIN [Concomitant]
     Active Substance: WARFARIN
     Indication: ATRIAL FIBRILLATION
     Dosage: 2.5-5 MG
     Route: 065
     Dates: start: 200603
  6. ISOSORBIDE. [Concomitant]
     Active Substance: ISOSORBIDE
     Indication: ATRIAL FIBRILLATION
     Dosage: 60 MG,UNK
     Route: 065
     Dates: start: 201109
  7. METFORMIN [Concomitant]
     Active Substance: METFORMIN HYDROCHLORIDE
     Indication: DIABETES MELLITUS
     Dosage: 1000 MG,UNK
     Route: 065
     Dates: start: 200601
  8. ATORVASTATIN [Concomitant]
     Active Substance: ATORVASTATIN
     Indication: ATRIAL FIBRILLATION
     Dosage: 5 MG,UNK
     Route: 065
     Dates: start: 200603
  9. VERAPAMIL [Concomitant]
     Active Substance: VERAPAMIL HYDROCHLORIDE
     Indication: ATRIAL FIBRILLATION
     Dosage: 120 MG,UNK
     Route: 065
     Dates: start: 201104
  10. SPIRIVA [Concomitant]
     Active Substance: TIOTROPIUM BROMIDE MONOHYDRATE
     Indication: ASTHMA
     Dosage: 18 UG,UNK
     Route: 065
     Dates: start: 201108
  11. GLIMEPIRIDE. [Concomitant]
     Active Substance: GLIMEPIRIDE
     Indication: DIABETES MELLITUS
     Dosage: 1 MG,UNK
     Route: 065
     Dates: start: 200601
  12. SYMBICORT [Concomitant]
     Active Substance: BUDESONIDE\FORMOTEROL FUMARATE DIHYDRATE
     Indication: ASTHMA
     Dosage: 640-18 M
     Route: 065
     Dates: start: 20160722
  13. LANTUS SOLOSTAR [Suspect]
     Active Substance: INSULIN GLARGINE
     Dosage: 32 DF,QD
     Route: 065
     Dates: start: 20160707
  14. LISINOPRIL. [Concomitant]
     Active Substance: LISINOPRIL
     Indication: DIABETES MELLITUS
     Dosage: 5 MG,UNK
     Route: 065
     Dates: start: 200603
  15. GABAPENTIN. [Concomitant]
     Active Substance: GABAPENTIN
     Dosage: 300 MG,UNK
     Route: 065
     Dates: start: 201601

REACTIONS (5)
  - Product storage error [Unknown]
  - Multiple use of single-use product [Unknown]
  - Incorrect dosage administered [Unknown]
  - Blood glucose decreased [Unknown]
  - Product use issue [Unknown]

NARRATIVE: CASE EVENT DATE: 2013
